FAERS Safety Report 7012893-2 (Version None)
Quarter: 2010Q3

REPORT INFORMATION
  Report Type: 
  Country: None (occurrence: None)
  Receive Date: 20100924
  Receipt Date: 20100917
  Transmission Date: 20110219
  Serious: Yes (Death)
  Sender: FDA-Public Use
  Company Number: GB-ABBOTT-04P-167-0269105-01

PATIENT
  Sex: Female

DRUGS (5)
  1. HUMIRA [Suspect]
     Indication: RHEUMATOID ARTHRITIS
     Route: 058
     Dates: start: 20040312
  2. THYROXIN [Concomitant]
     Indication: HYPOTHYROIDISM
     Dates: start: 19960101, end: 20040729
  3. ARTHROTEC [Concomitant]
     Indication: RHEUMATOID ARTHRITIS
     Dates: start: 20030101, end: 20040729
  4. PREDNISOLONE [Concomitant]
     Indication: RHEUMATOID ARTHRITIS
     Dates: start: 19970401, end: 20040729
  5. HUMIRA [Concomitant]
     Route: 058
     Dates: start: 20031223

REACTIONS (2)
  - ACUTE LEFT VENTRICULAR FAILURE [None]
  - ARTERIOSCLEROSIS CORONARY ARTERY [None]
